FAERS Safety Report 5127757-9 (Version None)
Quarter: 2006Q4

REPORT INFORMATION
  Report Type: 
  Country: None (occurrence: None)
  Receive Date: 20061016
  Receipt Date: 20061012
  Transmission Date: 20070319
  Serious: Yes (Other)
  Sender: FDA-Public Use
  Company Number: US-GLAXOSMITHKLINE-A0623335A

PATIENT
  Age: 36 Year
  Sex: Female

DRUGS (2)
  1. BC ALLERGY SINUS HEADACHE POWDER [Suspect]
     Indication: SINUS DISORDER
     Route: 048
     Dates: start: 20061010, end: 20061010
  2. LOTREL [Concomitant]

REACTIONS (1)
  - APHASIA [None]
